FAERS Safety Report 21416781 (Version 1)
Quarter: 2022Q4

REPORT INFORMATION
  Report Type: Spontaneous
  Country: BR (occurrence: BR)
  Receive Date: 20221006
  Receipt Date: 20221006
  Transmission Date: 20230112
  Serious: Yes (Other)
  Sender: FDA-Public Use
  Company Number: BR-MYLANLABS-2022M1111215

PATIENT
  Sex: Male
  Weight: 92 kg

DRUGS (4)
  1. CLOZAPINE [Suspect]
     Active Substance: CLOZAPINE
     Indication: Schizophrenia
     Dosage: 0.2 GRAM, PM, 2 TABLETS AT NIGHT
     Route: 048
  2. LITHIUM CARBONATE [Suspect]
     Active Substance: LITHIUM CARBONATE
     Indication: Schizophrenia
     Dosage: 0.9 GRAM, PM, AT NIGHT
     Route: 048
  3. LITHIUM CARBONATE [Suspect]
     Active Substance: LITHIUM CARBONATE
     Dosage: 0.3 GRAM, PM
     Route: 048
  4. SULPIRIDE [Concomitant]
     Active Substance: SULPIRIDE
     Indication: Schizophrenia
     Dosage: 0.4 GRAM, PM, AT NIGHT
     Route: 048

REACTIONS (6)
  - Seizure [Unknown]
  - Hypothyroidism [Not Recovered/Not Resolved]
  - Constipation [Unknown]
  - Product availability issue [Unknown]
  - Product prescribing error [Unknown]
  - Expired product administered [Unknown]
